FAERS Safety Report 5541013-6 (Version None)
Quarter: 2007Q4

REPORT INFORMATION
  Report Type: 
  Country: None (occurrence: None)
  Receive Date: 20071209
  Receipt Date: 20061228
  Transmission Date: 20080405
  Serious: No
  Sender: FDA-Public Use
  Company Number: US-AMGEN-KDL205139

PATIENT
  Sex: Male

DRUGS (1)
  1. ENBREL [Suspect]
     Indication: PSORIASIS
     Route: 058
     Dates: start: 20061005, end: 20061106

REACTIONS (4)
  - HYPOAESTHESIA [None]
  - INCREASED UPPER AIRWAY SECRETION [None]
  - PHARYNGOLARYNGEAL PAIN [None]
  - PSORIASIS [None]
